FAERS Safety Report 7528056-8 (Version None)
Quarter: 2011Q2

REPORT INFORMATION
  Report Type: 
  Country: None (occurrence: None)
  Receive Date: 20110517
  Receipt Date: 20100812
  Transmission Date: 20111010
  Serious: Yes (Hospitalization)
  Sender: FDA-Public Use
  Company Number: ALL1-2010-04270

PATIENT
  Age: 47 Year
  Sex: Female

DRUGS (1)
  1. FOSRENOL [Suspect]
     Indication: HYPERPHOSPHATAEMIA
     Dosage: TWO, 1000MG TABLET WITH EACH MEAL, ORAL
     Route: 048
     Dates: start: 20050101

REACTIONS (2)
  - NAUSEA [None]
  - VOMITING [None]
